FAERS Safety Report 5818754-6 (Version None)
Quarter: 2008Q3

REPORT INFORMATION
  Report Type: 
  Country: None (occurrence: None)
  Receive Date: 20080718
  Receipt Date: 20080718
  Transmission Date: 20090109
  Serious: Yes (Other)
  Sender: FDA-Public Use
  Company Number: None

PATIENT
  Sex: Male
  Weight: 83.0083 kg

DRUGS (2)
  1. PRAVASTATIN [Suspect]
     Indication: HYPERLIPIDAEMIA
     Dosage: 40 MG 1 TAB BEDTIME ORAL
     Route: 048
     Dates: start: 20080201
  2. TRAMADOL HCL [Suspect]
     Indication: PAIN
     Dosage: 50 MG 2 TABS QID ORAL
     Route: 048
     Dates: start: 20050101

REACTIONS (3)
  - DYSPLASIA [None]
  - LICHEN PLANUS [None]
  - SQUAMOUS CELL CARCINOMA [None]
